FAERS Safety Report 9354842 (Version 1)
Quarter: 2013Q2

REPORT INFORMATION
  Report Type: Report from Study
  Country: CA (occurrence: CA)
  Receive Date: 20130619
  Receipt Date: 20130619
  Transmission Date: 20140414
  Serious: Yes (Hospitalization)
  Sender: FDA-Public Use
  Company Number: CA-009507513-0905USA02390

PATIENT
  Age: 86 Year
  Sex: Male
  Weight: 86.18 kg

DRUGS (27)
  1. BLINDED EZETIMIBE (+) SIMVASTATIN [Suspect]
     Indication: ACUTE CORONARY SYNDROME
     Dosage: UNK
     Route: 048
     Dates: start: 20070425
  2. BLINDED PLACEBO [Suspect]
     Indication: ACUTE CORONARY SYNDROME
     Dosage: UNK
     Route: 048
     Dates: start: 20070425
  3. BLINDED POST TRIAL THERAPY [Suspect]
     Indication: ACUTE CORONARY SYNDROME
     Dosage: UNK
     Route: 048
     Dates: start: 20070425
  4. BLINDED PRE TRIAL THERAPY [Suspect]
     Indication: ACUTE CORONARY SYNDROME
     Dosage: UNK
     Route: 048
     Dates: start: 20070425
  5. BLINDED SIMVASTATIN [Suspect]
     Indication: ACUTE CORONARY SYNDROME
     Dosage: UNK
     Route: 048
     Dates: start: 20070425
  6. BLINDED THERAPY [Suspect]
     Indication: ACUTE CORONARY SYNDROME
     Route: 048
     Dates: start: 20070425
  7. REMERON [Suspect]
     Indication: DEPRESSION
     Dosage: 15 MG, HS
     Route: 048
     Dates: start: 20090227, end: 20090319
  8. TYLENOL [Concomitant]
     Dosage: TOTAL DAILY DOSE 650-1300
     Route: 048
     Dates: start: 19900101
  9. LASIX (FUROSEMIDE) [Concomitant]
     Dosage: TOTAL DAILY DOSE 40 MG
     Route: 048
     Dates: start: 20000101
  10. NITROPATCH [Concomitant]
     Dosage: TOTAL DAILY DOSE 0.4 MG
     Route: 061
     Dates: start: 20000102
  11. LEVOTHYROXINE SODIUM [Concomitant]
     Dosage: TOTAL DAILY DOSE 75 MCG
     Route: 048
     Dates: start: 20030101
  12. RABEPRAZOLE SODIUM [Concomitant]
     Dosage: TOTAL DAILY DOSE 20 MG
     Route: 048
     Dates: start: 20030101
  13. ATENOLOL [Concomitant]
     Dosage: TOTAL DAILY DOSE 100 MG
     Route: 048
     Dates: start: 20070214
  14. ASPIRIN [Concomitant]
     Dosage: TOTAL DAILY DOSE 81 MG
     Route: 048
     Dates: start: 19900101
  15. DICLOFENAC [Concomitant]
     Dosage: TOTAL DAILY DOSE 100 MG
     Route: 048
     Dates: start: 20070425
  16. COLACE [Concomitant]
     Dosage: TOTAL DAILY DOSE 4 TABS
     Route: 048
     Dates: start: 20070425
  17. GALANTAMINE [Concomitant]
     Dosage: TOTAL DAILY DOSE 8 MG
     Route: 048
     Dates: start: 20070425
  18. CITALOPRAM [Concomitant]
     Dosage: TOTAL DAILY DOSE 30 MG
     Route: 048
     Dates: start: 20070425
  19. VENLAFAXINE HYDROCHLORIDE [Concomitant]
     Dosage: TOTAL DAILY DOSE 75 MG
     Route: 048
     Dates: start: 20070425
  20. SENOKOT (SENNA) [Concomitant]
     Dosage: TOTAL DAILY DOSE 4 TABS
     Route: 048
     Dates: start: 20070425
  21. MISOPROSTOL [Concomitant]
     Dosage: TOTAL DAILY DOSE 400 MG
     Route: 048
     Dates: start: 20070425
  22. FERRIC GLUCONATE [Concomitant]
     Dosage: TOTAL DAILY DOSE 300 MG
     Route: 048
     Dates: start: 20070425
  23. ZOPICLONE [Concomitant]
     Dosage: TOTAL DAILY DOSE 7.5 MG
     Route: 048
     Dates: start: 19900101
  24. AMLODIPINE [Concomitant]
     Dosage: TOTAL DAILY DOSE 10 MG
     Route: 048
     Dates: start: 20080408
  25. HYDROMORPHONE [Concomitant]
     Dosage: TOTAL DAILY DOSE 2-16 MG
     Route: 048
     Dates: start: 20080201
  26. HYDROMORPHONE [Concomitant]
     Dosage: 3 MG, Q12H
     Route: 048
     Dates: start: 20080223
  27. MOXIFLOXACIN HYDROCHLORIDE [Concomitant]
     Dosage: TOTAL DAILY DOSE 400 MG
     Route: 048
     Dates: start: 20090222, end: 20090222

REACTIONS (4)
  - Suicidal ideation [Recovered/Resolved]
  - Pneumonia [Recovered/Resolved]
  - Hallucination [Recovered/Resolved]
  - Urinary tract infection [Recovered/Resolved]
